FAERS Safety Report 14434898 (Version 1)
Quarter: 2018Q1

REPORT INFORMATION
  Report Type: Spontaneous
  Country: DE (occurrence: DE)
  Receive Date: 20180125
  Receipt Date: 20180125
  Transmission Date: 20180509
  Serious: Yes (Congenital Anomaly, Other)
  Sender: FDA-Public Use
  Company Number: DE-SUN PHARMACEUTICAL INDUSTRIES LTD-2018R1-161154

PATIENT
  Age: 1 Day
  Sex: Male
  Weight: 3.91 kg

DRUGS (3)
  1. AARANE SPRAY [Concomitant]
     Indication: ASTHMA
     Dosage: IF REQUIRED
     Route: 064
  2. CITALOPRAM [Suspect]
     Active Substance: CITALOPRAM HYDROBROMIDE
     Indication: PSYCHOTIC DISORDER
     Dosage: 20 MG, DAILY, 0 - 38. GESTATIONAL WEEK
     Route: 064
     Dates: start: 20160330, end: 20161221
  3. FOLIO FORTE [Concomitant]
     Active Substance: FOLIC ACID\VITAMINS
     Indication: PROPHYLAXIS OF NEURAL TUBE DEFECT
     Dosage: 08 MG, DAILY
     Route: 064
     Dates: start: 20160330, end: 20161221

REACTIONS (4)
  - Foetal exposure during pregnancy [Recovering/Resolving]
  - Respiratory disorder neonatal [Recovered/Resolved]
  - Limb reduction defect [Not Recovered/Not Resolved]
  - Large for dates baby [Recovering/Resolving]

NARRATIVE: CASE EVENT DATE: 20161221
